FAERS Safety Report 6890617-7 (Version None)
Quarter: 2010Q3

REPORT INFORMATION
  Report Type: 
  Country: None (occurrence: None)
  Receive Date: 20100731
  Receipt Date: 20090107
  Transmission Date: 20110219
  Serious: No
  Sender: FDA-Public Use
  Company Number: US-PFIZER INC-2009151838

PATIENT
  Sex: Male
  Weight: 83.9 kg

DRUGS (1)
  1. LIPITOR [Suspect]
     Indication: BLOOD CHOLESTEROL ABNORMAL
     Dosage: 20 MG, 1X/DAY

REACTIONS (5)
  - DIZZINESS [None]
  - DYSPHONIA [None]
  - FEELING ABNORMAL [None]
  - MUSCLE SPASMS [None]
  - NAUSEA [None]
